FAERS Safety Report 17043685 (Version 2)
Quarter: 2019Q4

REPORT INFORMATION
  Report Type: Spontaneous
  Country: AR (occurrence: AR)
  Receive Date: 20191118
  Receipt Date: 20191212
  Transmission Date: 20200122
  Serious: Yes (Other)
  Sender: FDA-Public Use
  Company Number: AR-PFIZER INC-2019412103

PATIENT
  Age: 17 Year
  Sex: Male

DRUGS (2)
  1. GENOTROPIN [Suspect]
     Active Substance: SOMATROPIN
     Dosage: 2 MG, UNK (1.5 MG TO 2 MG, 6 TIMES PER WEEK)
     Dates: start: 20110330, end: 201908
  2. GENOTROPIN [Suspect]
     Active Substance: SOMATROPIN
     Indication: PRADER-WILLI SYNDROME
     Dosage: 1.5 MG, UNK (1.5 MG TO 2 MG, 6 TIMES PER WEEK)
     Dates: start: 20110330, end: 201908

REACTIONS (3)
  - Mental disorder [Unknown]
  - Intentional dose omission [Unknown]
  - Anger [Recovering/Resolving]

NARRATIVE: CASE EVENT DATE: 201908
